FAERS Safety Report 8773743 (Version 1)
Quarter: 2012Q4

REPORT INFORMATION
  Report Type: 
  Country: BR (occurrence: BR)
  Receive Date: 20120907
  Receipt Date: 20120907
  Transmission Date: 20130627
  Serious: Yes (Other)
  Sender: FDA-Public Use
  Company Number: BR-PFIZER INC-2012206097

PATIENT
  Age: 28 Year
  Sex: Female
  Weight: 64 kg

DRUGS (2)
  1. PROVERA [Suspect]
     Indication: AMENORRHOEA
     Dosage: 140 mg, 1x/day, (14 tablets of 10mg)
     Route: 048
     Dates: start: 20120817, end: 20120817
  2. PROVERA [Suspect]
     Indication: MENSTRUATION DELAYED
     Dosage: 140 mg, 1x/day, (14 tablets of 10mg)
     Route: 048
     Dates: start: 20120820, end: 20120820

REACTIONS (7)
  - Overdose [Unknown]
  - Haemorrhage [Not Recovered/Not Resolved]
  - Abortion spontaneous [Unknown]
  - Pain [Not Recovered/Not Resolved]
  - Vulvovaginal swelling [Not Recovered/Not Resolved]
  - Abdominal pain [Not Recovered/Not Resolved]
  - Asthenia [Not Recovered/Not Resolved]
